FAERS Safety Report 4750749-6 (Version None)
Quarter: 2005Q3

REPORT INFORMATION
  Report Type: 
  Country: None (occurrence: None)
  Receive Date: 20050822
  Receipt Date: 20050808
  Transmission Date: 20060218
  Serious: Yes (Hospitalization)
  Sender: FDA-Public Use
  Company Number: 195584

PATIENT
  Sex: Female
  Weight: 89.8122 kg

DRUGS (3)
  1. AVONEX [Suspect]
     Indication: MULTIPLE SCLEROSIS
     Dosage: 30 UG;QW;IM    30 UG;QW;IM
     Route: 030
     Dates: start: 20030101, end: 20030101
  2. AVONEX [Suspect]
     Indication: MULTIPLE SCLEROSIS
     Dosage: 30 UG;QW;IM    30 UG;QW;IM
     Route: 030
     Dates: end: 20030101
  3. TRANXENE [Concomitant]

REACTIONS (13)
  - BACK PAIN [None]
  - BLADDER PAIN [None]
  - COLONIC POLYP [None]
  - CONDITION AGGRAVATED [None]
  - DEPRESSION [None]
  - DYSPHAGIA [None]
  - FATIGUE [None]
  - LUNG NEOPLASM [None]
  - MULTIPLE SCLEROSIS RELAPSE [None]
  - PSYCHOTIC DISORDER [None]
  - RIB FRACTURE [None]
  - SCHIZOAFFECTIVE DISORDER [None]
  - WEIGHT DECREASED [None]
